FAERS Safety Report 10684049 (Version 2)
Quarter: 2015Q1

REPORT INFORMATION
  Report Type: Spontaneous
  Country: JP (occurrence: JP)
  Receive Date: 20141230
  Receipt Date: 20150203
  Transmission Date: 20150720
  Serious: Yes (Hospitalization)
  Sender: FDA-Public Use
  Company Number: JP-MYLANLABS-2014M1015694

PATIENT

DRUGS (2)
  1. CLOCAPRAMINE [Suspect]
     Active Substance: CLOCAPRAMINE
     Indication: SCHIZOPHRENIA
     Dosage: 75MG
     Route: 065
  2. HALOPERIDOL. [Suspect]
     Active Substance: HALOPERIDOL
     Dosage: 12MG
     Route: 065

REACTIONS (3)
  - Psychotic disorder [Recovered/Resolved]
  - Rebound effect [Recovered/Resolved]
  - Drug tolerance [Unknown]
